FAERS Safety Report 6555144-5 (Version None)
Quarter: 2010Q1

REPORT INFORMATION
  Report Type: 
  Country: None (occurrence: None)
  Receive Date: 20100126
  Receipt Date: 20100126
  Transmission Date: 20100710
  Serious: No
  Sender: FDA-Public Use
  Company Number: None

PATIENT
  Sex: Male
  Weight: 19.0511 kg

DRUGS (1)
  1. AMBIEN [Suspect]
     Indication: ATTENTION DEFICIT/HYPERACTIVITY DISORDER
     Dosage: 10MG 1/2 TAB QID PRN PO
     Route: 048
     Dates: start: 20100114, end: 20100120

REACTIONS (4)
  - BLINDNESS TRANSIENT [None]
  - HEADACHE [None]
  - NAUSEA [None]
  - VOMITING [None]
